FAERS Safety Report 4449673-8 (Version None)
Quarter: 2004Q3

REPORT INFORMATION
  Report Type: 
  Country: None (occurrence: None)
  Receive Date: 20040913
  Receipt Date: 20040827
  Transmission Date: 20050211
  Serious: Yes (Hospitalization)
  Sender: FDA-Public Use
  Company Number: 203807

PATIENT
  Age: 56 Year
  Sex: Female
  Weight: 92.0802 kg

DRUGS (9)
  1. AVONEX [Suspect]
     Indication: MULTIPLE SCLEROSIS
     Dosage: 30 MCG QW IM
     Route: 030
     Dates: start: 20040301
  2. MAXZIDE [Concomitant]
  3. SKELAXIN [Concomitant]
  4. NEURONTIN [Concomitant]
  5. LEXAPRO [Concomitant]
  6. RISPERDAL [Concomitant]
  7. TOPAMAX [Concomitant]
  8. AMBIEN [Concomitant]
  9. XANAX [Concomitant]

REACTIONS (11)
  - DYSPHAGIA [None]
  - DYSPNOEA [None]
  - FACIAL PALSY [None]
  - HEART VALVE INSUFFICIENCY [None]
  - INFUSION SITE BRUISING [None]
  - INJECTION SITE HAEMORRHAGE [None]
  - NAUSEA [None]
  - OSTEOARTHRITIS [None]
  - OXYGEN SATURATION DECREASED [None]
  - PNEUMONIA VIRAL [None]
  - PYREXIA [None]
